FAERS Safety Report 12486165 (Version 2)
Quarter: 2016Q3

REPORT INFORMATION
  Report Type: Spontaneous
  Country: NO (occurrence: NO)
  Receive Date: 20160621
  Receipt Date: 20160708
  Transmission Date: 20161109
  Serious: Yes (Life-Threatening, Hospitalization, Disabling, Other)
  Sender: FDA-Public Use
  Company Number: NO-GILEAD-2016-0214009

PATIENT
  Age: 70 Year
  Sex: Male
  Weight: 72 kg

DRUGS (8)
  1. ZYDELIG [Suspect]
     Active Substance: IDELALISIB
     Indication: CHRONIC LYMPHOCYTIC LEUKAEMIA
     Dosage: 150 MG, BID
     Route: 048
     Dates: start: 20160415, end: 20160506
  2. ZYDELIG [Suspect]
     Active Substance: IDELALISIB
     Indication: INFECTION
  3. ZYDELIG [Suspect]
     Active Substance: IDELALISIB
     Indication: B-CELL SMALL LYMPHOCYTIC LYMPHOMA
  4. ZYDELIG [Suspect]
     Active Substance: IDELALISIB
     Indication: DISEASE PROGRESSION
  5. GAZYVARO [Concomitant]
     Active Substance: OBINUTUZUMAB
     Indication: INFECTION
  6. GAZYVARO [Concomitant]
     Active Substance: OBINUTUZUMAB
     Indication: DISEASE PROGRESSION
  7. GAZYVARO [Concomitant]
     Active Substance: OBINUTUZUMAB
     Indication: CHRONIC LYMPHOCYTIC LEUKAEMIA
     Dosage: UNK, RECEIVED ONLY IN DAY ONE
     Route: 042
     Dates: start: 20160503, end: 20160504
  8. GAZYVARO [Concomitant]
     Active Substance: OBINUTUZUMAB
     Indication: B-CELL SMALL LYMPHOCYTIC LYMPHOMA

REACTIONS (6)
  - Thrombocytopenia [Recovered/Resolved]
  - Cytopenia [Recovered/Resolved]
  - Delirium [Not Recovered/Not Resolved]
  - Confusional state [Not Recovered/Not Resolved]
  - Pneumonia [Recovered/Resolved]
  - Pseudomonal sepsis [Recovered/Resolved with Sequelae]

NARRATIVE: CASE EVENT DATE: 20160506
